FAERS Safety Report 25179988 (Version 1)
Quarter: 2025Q2

REPORT INFORMATION
  Report Type: Spontaneous
  Country: US (occurrence: None)
  Receive Date: 20250409
  Receipt Date: 20250409
  Transmission Date: 20250716
  Serious: Yes (Hospitalization)
  Sender: FDA-CTU
  Company Number: None

PATIENT
  Age: 35 Year
  Sex: Male
  Weight: 88 kg

DRUGS (1)
  1. MONTELUKAST SODIUM [Suspect]
     Active Substance: MONTELUKAST SODIUM
     Indication: Asthma
     Dosage: 10.00 MG DILY ORAL ?
     Route: 048
     Dates: start: 20220321

REACTIONS (2)
  - Psychotic disorder [None]
  - Suicidal ideation [None]

NARRATIVE: CASE EVENT DATE: 20240901
